FAERS Safety Report 9383699 (Version 1)
Quarter: 2013Q3

REPORT INFORMATION
  Report Type: Report from Study
  Country: CA (occurrence: CA)
  Receive Date: 20130704
  Receipt Date: 20130704
  Transmission Date: 20140515
  Serious: Yes (Other)
  Sender: FDA-Public Use
  Company Number: CA-JNJFOC-20130619730

PATIENT
  Age: 53 Year
  Sex: Female
  Weight: 130 kg

DRUGS (1)
  1. REMICADE [Suspect]
     Indication: COLITIS ULCERATIVE
     Route: 042
     Dates: start: 20070809

REACTIONS (3)
  - Cellulitis [Unknown]
  - Joint injury [Unknown]
  - Fall [Unknown]
